FAERS Safety Report 25665698 (Version 1)
Quarter: 2025Q3

REPORT INFORMATION
  Report Type: Spontaneous
  Country: EU (occurrence: EU)
  Receive Date: 20250811
  Receipt Date: 20250811
  Transmission Date: 20251020
  Serious: Yes (Other)
  Sender: BRISTOL-MYERS SQUIBB COMPANY
  Company Number: None

PATIENT
  Age: 76 Year
  Sex: Female

DRUGS (7)
  1. OPDIVO [Suspect]
     Active Substance: NIVOLUMAB
     Indication: Clear cell renal cell carcinoma
     Route: 042
     Dates: start: 20250714, end: 20250804
  2. OPDIVO [Suspect]
     Active Substance: NIVOLUMAB
     Route: 042
     Dates: start: 20250714, end: 20250804
  3. NELVUTAMIG [Concomitant]
     Active Substance: NELVUTAMIG
     Indication: Clear cell renal cell carcinoma
     Route: 042
     Dates: start: 20250714, end: 20250714
  4. LERCADIP [LERCANIDIPINE] [Concomitant]
     Indication: Product used for unknown indication
  5. LUMIGAN [Concomitant]
     Active Substance: BIMATOPROST
     Indication: Product used for unknown indication
  6. FOSTER [Concomitant]
     Active Substance: BECLOMETHASONE\FORMOTEROL
     Indication: Product used for unknown indication
  7. ENALAPRIL MALEATE\HYDROCHLOROTHIAZIDE [Concomitant]
     Active Substance: ENALAPRIL MALEATE\HYDROCHLOROTHIAZIDE
     Indication: Product used for unknown indication

REACTIONS (6)
  - Pyrexia [Recovered/Resolved]
  - Flushing [Recovered/Resolved]
  - Feeling hot [Recovered/Resolved]
  - Cough [Recovered/Resolved]
  - Blood pressure increased [Recovered/Resolved]
  - Urticaria [Not Recovered/Not Resolved]

NARRATIVE: CASE EVENT DATE: 20250718
